FAERS Safety Report 8571478 (Version 2)
Quarter: 2012Q4

REPORT INFORMATION
  Report Type: Report from Study
  Country: JP (occurrence: JP)
  Receive Date: 20120521
  Receipt Date: 20120904
  Transmission Date: 20130627
  Serious: Yes (Hospitalization)
  Sender: FDA-Public Use
  Company Number: JP-EISAI INC-E7389-02439-CLI-JP

PATIENT
  Age: 68 Year
  Sex: Female
  Weight: 46 kg

DRUGS (13)
  1. HALAVEN [Suspect]
     Indication: BREAST CANCER RECURRENT
     Route: 041
     Dates: start: 20111025
  2. HALAVEN [Suspect]
     Indication: METASTASES TO LIVER
     Route: 041
     Dates: start: 20111004, end: 20111004
  3. HALAVEN [Suspect]
     Indication: METASTASES TO BONE
  4. HALAVEN [Suspect]
     Indication: METASTASES TO PLEURA
  5. ARTIST [Concomitant]
     Route: 048
  6. ZETIA [Concomitant]
     Route: 048
  7. DIART [Concomitant]
     Route: 048
  8. VASOLAN [Concomitant]
     Route: 048
  9. HALFDIGOXIN [Concomitant]
     Route: 048
  10. RIZE [Concomitant]
     Route: 048
  11. DEPAS [Concomitant]
  12. ALDACTONE A [Concomitant]
     Route: 048
  13. BLOPRESS [Concomitant]
     Route: 048

REACTIONS (6)
  - Cardiac failure congestive [Recovering/Resolving]
  - Leukopenia [None]
  - Neutropenia [None]
  - Malaise [None]
  - Alopecia [None]
  - Neuropathy peripheral [None]
